FAERS Safety Report 9303686 (Version 1)
Quarter: 2013Q2

REPORT INFORMATION
  Report Type: Spontaneous
  Country: US (occurrence: None)
  Receive Date: 20130521
  Receipt Date: 20130521
  Transmission Date: 20140414
  Serious: Yes (Hospitalization)
  Sender: FDA-Public Use
  Company Number: None

PATIENT
  Age: 49 Year
  Sex: Male

DRUGS (2)
  1. SUCCINYLCHOLINE [Suspect]
     Route: 042
     Dates: start: 20130423, end: 20130423
  2. SUCCINYLCHOLINE [Suspect]
     Route: 042
     Dates: start: 20130423, end: 20130423

REACTIONS (5)
  - Rhabdomyolysis [None]
  - Immobile [None]
  - Hepatic cirrhosis [None]
  - Hypothyroidism [None]
  - Post procedural complication [None]
